FAERS Safety Report 12427005 (Version 1)
Quarter: 2016Q2

REPORT INFORMATION
  Report Type: Spontaneous
  Country: BR (occurrence: BR)
  Receive Date: 20160601
  Receipt Date: 20160601
  Transmission Date: 20160815
  Serious: Yes (Death)
  Sender: FDA-Public Use
  Company Number: BR-BAYER-2016-100125

PATIENT
  Age: 57 Year
  Sex: Male

DRUGS (5)
  1. REGULAR INSULIN [Concomitant]
     Active Substance: INSULIN NOS
     Indication: DIABETES MELLITUS
     Dosage: UNK UNK, BID (8 IU IN THE MORNING/ 6 IU AT NIGHT)
     Route: 058
  2. NEXAVAR [Suspect]
     Active Substance: SORAFENIB
     Indication: HEPATIC CANCER
     Dosage: 400 MG, BID
     Route: 048
     Dates: start: 20160426, end: 20160519
  3. EVEROLIMUS [Concomitant]
     Active Substance: EVEROLIMUS
     Indication: LIVER TRANSPLANT
     Dosage: 1 DF, BID
     Route: 048
  4. LOSARTAN. [Concomitant]
     Active Substance: LOSARTAN
     Indication: BLOOD PRESSURE MEASUREMENT
     Dosage: 1 DF, BID
     Route: 048
  5. NPH INSULIN [Concomitant]
     Active Substance: INSULIN BEEF
     Indication: DIABETES MELLITUS
     Dosage: UNK UNK, BID (14 IU IN THE MORNING/ 10 IU AT NIGHT)
     Route: 058

REACTIONS (3)
  - Cardio-respiratory arrest [Fatal]
  - Hepatic cancer [Fatal]
  - Hepatic failure [Fatal]
